FAERS Safety Report 10390691 (Version 2)
Quarter: 2014Q4

REPORT INFORMATION
  Report Type: Spontaneous
  Country: US (occurrence: US)
  Receive Date: 20140818
  Receipt Date: 20141119
  Transmission Date: 20150528
  Serious: No
  Sender: FDA-Public Use
  Company Number: US-SA-2014SA067695

PATIENT
  Age: 6 Year
  Sex: Male

DRUGS (1)
  1. AUVI-Q [Suspect]
     Active Substance: EPINEPHRINE
     Indication: FOOD ALLERGY
     Route: 065
     Dates: start: 201403, end: 201404

REACTIONS (1)
  - Food allergy [Recovered/Resolved]

NARRATIVE: CASE EVENT DATE: 20140516
